FAERS Safety Report 13287552 (Version 1)
Quarter: 2017Q1

REPORT INFORMATION
  Report Type: Spontaneous
  Country: US (occurrence: US)
  Receive Date: 20170302
  Receipt Date: 20170302
  Transmission Date: 20170428
  Serious: Yes (Hospitalization, Other)
  Sender: FDA-Public Use
  Company Number: US-PFIZER INC-2016322722

PATIENT
  Age: 38 Year
  Sex: Female
  Weight: 59 kg

DRUGS (24)
  1. VICODIN [Concomitant]
     Active Substance: ACETAMINOPHEN\HYDROCODONE BITARTRATE
     Indication: SPINAL PAIN
     Dosage: UNK
     Route: 048
  2. OXYCODONE AND ACETAMINOPHEN [Concomitant]
     Active Substance: ACETAMINOPHEN\OXYCODONE HYDROCHLORIDE
     Indication: SPINAL PAIN
     Dosage: UNK
     Route: 048
  3. FENTANYL. [Concomitant]
     Active Substance: FENTANYL
     Indication: SPINAL PAIN
     Dosage: UNK
     Route: 062
  4. LEVETIRACETAM. [Concomitant]
     Active Substance: LEVETIRACETAM
     Indication: SPINAL PAIN
     Dosage: UNK
     Route: 048
  5. LYRICA [Suspect]
     Active Substance: PREGABALIN
     Indication: SPINAL PAIN
     Dosage: 150 MG, 3X/DAY (1 CAP BY MOUTH EVERY 8 HOURS)
     Route: 048
     Dates: start: 20170221
  6. MORPHINE [Concomitant]
     Active Substance: MORPHINE
     Indication: SPINAL PAIN
     Dosage: 30 MG, 2X/DAY, (ER)
     Route: 048
  7. DILAUDID [Concomitant]
     Active Substance: HYDROMORPHONE HYDROCHLORIDE
     Dosage: 2 MG, 3X/DAY
  8. AMITRIPTYLINE [Concomitant]
     Active Substance: AMITRIPTYLINE
     Indication: PAIN
     Dosage: UNK
  9. LYRICA [Suspect]
     Active Substance: PREGABALIN
     Indication: PAIN
     Dosage: 150 MG, 3X/DAY (1 CAP BY MOUTH EVERY 8 HOURS)
     Route: 048
     Dates: start: 20160620
  10. CYMBALTA [Concomitant]
     Active Substance: DULOXETINE HYDROCHLORIDE
     Indication: SPINAL PAIN
     Dosage: UNK
     Route: 048
  11. MS CONTIN [Concomitant]
     Active Substance: MORPHINE SULFATE
     Indication: PAIN
     Dosage: 30 MG, 2X/DAY
     Route: 048
  12. HYDROMORPHONE [Concomitant]
     Active Substance: HYDROMORPHONE
     Indication: SPINAL PAIN
     Dosage: UNK
  13. IBUPROFEN. [Concomitant]
     Active Substance: IBUPROFEN
     Indication: SPINAL PAIN
     Dosage: UNK
     Route: 048
  14. AMBIEN [Concomitant]
     Active Substance: ZOLPIDEM TARTRATE
     Indication: SPINAL PAIN
     Dosage: UNK
     Route: 048
  15. DILAUDID [Concomitant]
     Active Substance: HYDROMORPHONE HYDROCHLORIDE
     Indication: PAIN
     Dosage: 2 MG, AS NEEDED, (EVERY 8 HOURS, Q 8H PRN/TID PRN)
     Route: 048
  16. OXYCODONE [Concomitant]
     Active Substance: OXYCODONE
     Indication: SPINAL PAIN
     Dosage: UNK, (IR)
     Route: 048
  17. KLONOPIN [Concomitant]
     Active Substance: CLONAZEPAM
     Indication: SPINAL PAIN
     Dosage: UNK
     Route: 048
  18. METHADONE [Concomitant]
     Active Substance: METHADONE HYDROCHLORIDE
     Indication: SPINAL PAIN
     Dosage: UNK
     Route: 048
  19. ACETAMINOPHEN. [Concomitant]
     Active Substance: ACETAMINOPHEN
     Indication: SPINAL PAIN
     Dosage: UNK
     Route: 048
  20. BACLOFEN. [Concomitant]
     Active Substance: BACLOFEN
     Indication: SPINAL PAIN
     Dosage: UNK
     Route: 048
  21. LYRICA [Suspect]
     Active Substance: PREGABALIN
     Indication: SPINAL CORD INJURY THORACIC
     Dosage: 150 MG, 3X/DAY (1 CAP BY MOUTH EVERY 8 HOURS)
     Route: 048
     Dates: start: 20150620
  22. TRAMADOL. [Concomitant]
     Active Substance: TRAMADOL
     Indication: SPINAL PAIN
     Dosage: UNK
     Route: 048
  23. PHENYTOIN. [Concomitant]
     Active Substance: PHENYTOIN
     Indication: SPINAL PAIN
     Dosage: UNK
     Route: 048
  24. NEURONTIN [Concomitant]
     Active Substance: GABAPENTIN
     Indication: SPINAL PAIN
     Dosage: UNK
     Route: 048

REACTIONS (8)
  - Activities of daily living impaired [Unknown]
  - Mental status changes [Unknown]
  - Neuralgia [Unknown]
  - Sleep disorder [Unknown]
  - Condition aggravated [Unknown]
  - Urinary tract infection [Unknown]
  - Femur fracture [Unknown]
  - Back pain [Unknown]
